FAERS Safety Report 24239808 (Version 1)
Quarter: 2024Q3

REPORT INFORMATION
  Report Type: Spontaneous
  Country: GB (occurrence: GB)
  Receive Date: 20240822
  Receipt Date: 20240822
  Transmission Date: 20241016
  Serious: Yes (Life-Threatening, Other)
  Sender: MYLAN
  Company Number: None

PATIENT
  Age: 82 Year
  Sex: Female

DRUGS (4)
  1. APIXABAN [Suspect]
     Active Substance: APIXABAN
     Indication: Product used for unknown indication
     Dosage: 2.5 MILLIGRAM
     Route: 065
  2. IRBESARTAN [Concomitant]
     Active Substance: IRBESARTAN
     Dosage: UNK
     Route: 065
  3. SOTALOL [Concomitant]
     Active Substance: SOTALOL\SOTALOL HYDROCHLORIDE
     Dosage: UNK
     Route: 065
  4. AMLODIPINE [Concomitant]
     Active Substance: AMLODIPINE BESYLATE
     Dosage: UNK
     Route: 065

REACTIONS (7)
  - Dizziness postural [Not Recovered/Not Resolved]
  - Fatigue [Not Recovered/Not Resolved]
  - Asthenia [Not Recovered/Not Resolved]
  - Syncope [Recovering/Resolving]
  - Respiratory arrest [Recovering/Resolving]
  - Epistaxis [Recovering/Resolving]
  - Medication error [Unknown]
